FAERS Safety Report 16231079 (Version 1)
Quarter: 2019Q2

REPORT INFORMATION
  Report Type: Spontaneous
  Country: DE (occurrence: DE)
  Receive Date: 20190423
  Receipt Date: 20190423
  Transmission Date: 20190711
  Serious: Yes (Hospitalization)
  Sender: FDA-Public Use
  Company Number: DE-SA-2019SA103961

PATIENT
  Age: 54 Year
  Sex: Female

DRUGS (20)
  1. NORTRILEN [Concomitant]
     Active Substance: NORTRIPTYLINE
     Dosage: 25 UNK
     Dates: start: 20170302, end: 20170305
  2. NORTRILEN [Concomitant]
     Active Substance: NORTRIPTYLINE
     Dosage: 50 MG, QD
     Dates: start: 20170306, end: 20170309
  3. PLAVIX [Suspect]
     Active Substance: CLOPIDOGREL BISULFATE
     Dosage: 75 MG, QD
     Route: 065
  4. NORTRIPTYLINE HYDROCHLORIDE. [Interacting]
     Active Substance: NORTRIPTYLINE HYDROCHLORIDE
     Dosage: 50 MG, QD
     Dates: start: 20170323
  5. VENLAFAXINE HYDROCHLORIDE. [Interacting]
     Active Substance: VENLAFAXINE HYDROCHLORIDE
     Dosage: 75 MG, QD
     Route: 065
     Dates: start: 20170310
  6. CALCIUM SANDOZ [CALCIUM CARBONATE;CALCIUM GLUCONATE] [Concomitant]
     Dosage: 500 MG, QD
  7. NORTRIPTYLINE HYDROCHLORIDE. [Interacting]
     Active Substance: NORTRIPTYLINE HYDROCHLORIDE
     Dosage: 100 MG, QD
     Dates: start: 20170316, end: 20170322
  8. METOPROLOL TARTRATE. [Interacting]
     Active Substance: METOPROLOL TARTRATE
     Dosage: 190 MG, QD
     Route: 065
  9. NORTRIPTYLINE HYDROCHLORIDE. [Interacting]
     Active Substance: NORTRIPTYLINE HYDROCHLORIDE
     Dosage: 75 MG, QD
     Dates: start: 20170310, end: 20170315
  10. AMLODIPINE [Interacting]
     Active Substance: AMLODIPINE BESYLATE
     Dosage: 5 MG, QD
  11. LITHIUM APOGEPHA [Concomitant]
     Active Substance: LITHIUM CARBONATE
     Dosage: 225 MG, QD
     Route: 065
     Dates: start: 20170321
  12. NORTRILEN [Concomitant]
     Active Substance: NORTRIPTYLINE
     Dosage: 75 UNK
     Dates: start: 20170310, end: 20170315
  13. NORTRILEN [Concomitant]
     Active Substance: NORTRIPTYLINE
     Dosage: 50 MG, QD
     Dates: start: 20170323
  14. NORTRILEN [Concomitant]
     Active Substance: NORTRIPTYLINE
     Dosage: 100 UNK
     Dates: start: 20170316, end: 20170322
  15. NORTRIPTYLINE HYDROCHLORIDE. [Interacting]
     Active Substance: NORTRIPTYLINE HYDROCHLORIDE
     Dosage: 25 MG, QD
     Dates: start: 20170302, end: 20170305
  16. NORTRIPTYLINE HYDROCHLORIDE. [Interacting]
     Active Substance: NORTRIPTYLINE HYDROCHLORIDE
     Dosage: 50 MG, QD
     Dates: start: 20170306, end: 20170309
  17. SIMVASTATIN. [Interacting]
     Active Substance: SIMVASTATIN
     Dosage: 20 MG, QD
     Route: 065
  18. VALDOXAN [Concomitant]
     Active Substance: AGOMELATINE
     Dosage: 50 MG, QD,DEPOSED 1 DAY BEFORE
     Route: 065
  19. COLECALCIFEROL [Interacting]
     Active Substance: CHOLECALCIFEROL
     Dosage: 20000 IU, QD
     Route: 065
  20. MAGNESIUM [Concomitant]
     Active Substance: MAGNESIUM
     Dosage: 150 MG, QD
     Route: 065

REACTIONS (2)
  - Drug interaction [Unknown]
  - Sleep disorder [Recovered/Resolved]

NARRATIVE: CASE EVENT DATE: 20170322
